FAERS Safety Report 9420687 (Version 3)
Quarter: 2013Q4

REPORT INFORMATION
  Report Type: Spontaneous
  Country: GB (occurrence: None)
  Receive Date: 20130723
  Receipt Date: 20131106
  Transmission Date: 20140711
  Serious: Yes (Hospitalization)
  Sender: FDA-Public Use
  Company Number: AUR-APL-2013-06022

PATIENT
  Age: 77 Year
  Sex: 0

DRUGS (11)
  1. PIPERACILLIN+TAZOBACTAM (PIPERACILLIN, TAZOBACTAM) [Suspect]
     Indication: RESPIRATORY FAILURE
     Dosage: 13.5 GM (4.5 GM,3 IN 1 D)
     Route: 041
     Dates: start: 20110414, end: 20110422
  2. PIPERACILLIN+TAZOBACTAM (PIPERACILLIN, TAZOBACTAM) [Suspect]
     Indication: PSEUDOMONAS INFECTION
     Dosage: 13.5 GM (4.5 GM,3 IN 1 D)
     Route: 041
     Dates: start: 20110414, end: 20110422
  3. CIPROFLOXACIN (CIPROFLOXACIN) [Suspect]
     Indication: PSEUDOMONAS INFECTION
     Dosage: 1000 MG (500 MG,2 IN 1 D)
     Route: 048
     Dates: start: 20110428, end: 20110430
  4. AMOXICILLIN (AMOXICILLIN) [Suspect]
     Indication: PRODUCT USED FOR UNKNOWN INDICATION
     Dosage: 1500 MG (500 MG,3 IN 1 D)
     Route: 048
     Dates: start: 20100329, end: 20100405
  5. TAZOCIN (PIP/TAZO) [Suspect]
     Indication: PNEUMONIA ASPIRATION
  6. CO-AMOXICLAV [Suspect]
     Indication: PNEUMONIA ASPIRATION
     Dosage: 1.2G STAT 1000MG/200MG
     Route: 042
     Dates: end: 20110413
  7. CLARITHROMYCIN (CLARITHROMYCIN) [Suspect]
     Indication: LOWER RESPIRATORY TRACT INFECTION
     Dosage: 1000 MG (500 MG,2 IN 1 D)
     Route: 042
     Dates: start: 20110414, end: 20110414
  8. CLARITHROMYCIN (CLARITHROMYCIN) [Suspect]
     Dosage: 1000 MG (500 MG,2 IN 1 D)
     Route: 042
     Dates: start: 20110414, end: 20110414
  9. LEVOFLOXACIN (LEVOFLOXACIN) [Suspect]
     Indication: PNEUMONIA ASPIRATION
     Route: 042
     Dates: start: 20110414, end: 20110414
  10. MEROPENEM (MEROPENEM) [Suspect]
     Indication: LOWER RESPIRATORY TRACT INFECTION
     Dosage: 6 GM (2 GM,3 IN 1 D)
     Route: 041
     Dates: start: 20110422, end: 20110429
  11. TEICOPLANIN (TEICOPLANIN) [Suspect]
     Indication: STAPHYLOCOCCAL INFECTION
     Dosage: 1.2G STAT AND 800MG ONCE DAILY STAT AND ONE DOSE GIVEN, THEN STOPPED
     Dates: start: 20110422, end: 20110422

REACTIONS (7)
  - Pyrexia [None]
  - Faeces discoloured [None]
  - Lung consolidation [None]
  - Pseudomonas test positive [None]
  - Lower respiratory tract infection [None]
  - Clostridium difficile infection [None]
  - Sepsis [None]
